FAERS Safety Report 6778809-9 (Version None)
Quarter: 2010Q2

REPORT INFORMATION
  Report Type: 
  Country: None (occurrence: None)
  Receive Date: 20100618
  Receipt Date: 20100610
  Transmission Date: 20101027
  Serious: Yes (Other)
  Sender: FDA-Public Use
  Company Number: US-RANBAXY-2010US-34544

PATIENT

DRUGS (3)
  1. CLINDAMYCIN [Suspect]
     Indication: PAIN
     Dosage: 300 MG, QID
     Route: 065
  2. CLINDAMYCIN [Suspect]
     Indication: SWELLING
  3. COTRIM [Concomitant]
     Indication: DRUG USE FOR UNKNOWN INDICATION
     Dosage: UNK, UNK
     Route: 065

REACTIONS (1)
  - ACUTE FEBRILE NEUTROPHILIC DERMATOSIS [None]
